FAERS Safety Report 20049597 (Version 1)
Quarter: 2021Q4

REPORT INFORMATION
  Report Type: Spontaneous
  Country: US (occurrence: US)
  Receive Date: 20211109
  Receipt Date: 20211109
  Transmission Date: 20220303
  Serious: Yes (Hospitalization)
  Sender: FDA-Public Use
  Company Number: US-MYLANLABS-2021M1080725

PATIENT
  Age: 41 Year
  Sex: Female

DRUGS (5)
  1. HEPARIN [Suspect]
     Active Substance: HEPARIN SODIUM
     Indication: Anticoagulant therapy
     Dosage: UNK
     Route: 065
  2. ARGATROBAN [Suspect]
     Active Substance: ARGATROBAN
     Indication: Anticoagulant therapy
     Dosage: 50 MILLIGRAM, 50 MG IN 1 L OF 5% DEXTROSE SOLUTION
     Route: 065
  3. SODIUM BICARBONATE [Concomitant]
     Active Substance: SODIUM BICARBONATE
     Indication: Product used for unknown indication
     Dosage: 25 MILLIEQUIVALENT, BICARBONATE-BASED PURGE SOLUTION 25 MEQ SODIUM BICARBONATE IN 1 L OF 5% DEXTROSE
     Route: 065
  4. DEXTROSE [Concomitant]
     Active Substance: DEXTROSE
     Indication: Vehicle solution use
     Dosage: 1 LITER, BICARBONATE-BASED PURGE SOLUTION 25 MEQ SODIUM BICARBONATE IN 1 L OF 5% DEXTROSE
     Route: 065
  5. DEXTROSE [Concomitant]
     Active Substance: DEXTROSE
     Dosage: 1 LITER, ARGATROBAN 50 MG IN 1 L OF 5% DEXTROSE SOLUTION
     Route: 065

REACTIONS (2)
  - Haemorrhage [Unknown]
  - Heparin-induced thrombocytopenia [Recovered/Resolved]
